FAERS Safety Report 8516148 (Version 2)
Quarter: 2014Q1

REPORT INFORMATION
  Report Type: Spontaneous
  Country: US (occurrence: US)
  Receive Date: 20120417
  Receipt Date: 20140203
  Transmission Date: 20141002
  Serious: No
  Sender: FDA-Public Use
  Company Number: US-ASTRAZENECA-2011SE41517

PATIENT
  Age: 61 Year
  Sex: Female

DRUGS (2)
  1. NEXIUM [Suspect]
     Dosage: TWICE DAILY, SOMETIMES THREE TIMES DAILY
     Route: 048
     Dates: start: 2001
  2. NEXIUM [Suspect]
     Route: 048
     Dates: start: 20131001

REACTIONS (3)
  - Osteoporosis [Unknown]
  - Ankle fracture [Unknown]
  - Lower limb fracture [Unknown]
